FAERS Safety Report 4959836-0 (Version None)
Quarter: 2006Q1

REPORT INFORMATION
  Report Type: 
  Country: None (occurrence: None)
  Receive Date: 20060331
  Receipt Date: 20050930
  Transmission Date: 20060701
  Serious: Yes (Other)
  Sender: FDA-Public Use
  Company Number: US-MERCK-0510USA01248

PATIENT
  Sex: Male
  Weight: 69 kg

DRUGS (4)
  1. VIOXX [Suspect]
     Indication: ARTHRITIS
     Route: 048
     Dates: start: 19990101, end: 20040101
  2. VIOXX [Suspect]
     Route: 048
     Dates: start: 19990101, end: 20040101
  3. TYLENOL ARTHRITIS EXTENDED RELIEF [Concomitant]
     Indication: ARTHRITIS
     Route: 048
  4. VIOXX [Suspect]
     Route: 048
     Dates: start: 19990101, end: 20040101

REACTIONS (12)
  - CARDIAC DISORDER [None]
  - CARDIOVASCULAR DISORDER [None]
  - CEREBROVASCULAR ACCIDENT [None]
  - DEPRESSION [None]
  - GASTROOESOPHAGEAL REFLUX DISEASE [None]
  - LIVER DISORDER [None]
  - MYOCARDIAL INFARCTION [None]
  - NERVE INJURY [None]
  - POOR PERIPHERAL CIRCULATION [None]
  - PULMONARY EMBOLISM [None]
  - RENAL DISORDER [None]
  - VISUAL ACUITY REDUCED [None]
